FAERS Safety Report 4451395-4 (Version None)
Quarter: 2004Q3

REPORT INFORMATION
  Report Type: 
  Country: None (occurrence: None)
  Receive Date: 20040916
  Receipt Date: 20000721
  Transmission Date: 20050211
  Serious: Yes (Death)
  Sender: FDA-Public Use
  Company Number: US-ROCHE-241581

PATIENT
  Age: 17 Year
  Sex: Male
  Weight: 77.1 kg

DRUGS (1)
  1. ACCUTANE [Suspect]
     Indication: ACNE
     Route: 048
     Dates: start: 19991207

REACTIONS (4)
  - BACK PAIN [None]
  - BLOOD TRIGLYCERIDES INCREASED [None]
  - COMPLETED SUICIDE [None]
  - LIP DRY [None]
